APPROVED DRUG PRODUCT: DOXEPIN HYDROCHLORIDE
Active Ingredient: DOXEPIN HYDROCHLORIDE
Strength: EQ 10MG BASE/ML
Dosage Form/Route: CONCENTRATE;ORAL
Application: A071918 | Product #001
Applicant: PHARMOBEDIENT CONSULTING
Approved: Jul 20, 1988 | RLD: No | RS: No | Type: DISCN